FAERS Safety Report 25360352 (Version 1)
Quarter: 2025Q2

REPORT INFORMATION
  Report Type: Report from Study
  Country: CN (occurrence: CN)
  Receive Date: 20250527
  Receipt Date: 20250527
  Transmission Date: 20250717
  Serious: Yes (Death)
  Sender: ROCHE
  Company Number: CN-ROCHE-10000290606

PATIENT
  Age: 85 Year
  Sex: Male
  Weight: 63 kg

DRUGS (32)
  1. POLIVY [Suspect]
     Active Substance: POLATUZUMAB VEDOTIN-PIIQ
     Indication: Diffuse large B-cell lymphoma
     Route: 042
     Dates: start: 20240526, end: 20240526
  2. POLIVY [Suspect]
     Active Substance: POLATUZUMAB VEDOTIN-PIIQ
     Route: 042
     Dates: start: 20240613, end: 20240613
  3. RITUXIMAB [Suspect]
     Active Substance: RITUXIMAB
     Indication: Diffuse large B-cell lymphoma
     Route: 042
     Dates: start: 20240524, end: 20240525
  4. RITUXIMAB [Suspect]
     Active Substance: RITUXIMAB
     Route: 042
     Dates: start: 20240612, end: 20240612
  5. ZANUBRUTINIB [Suspect]
     Active Substance: ZANUBRUTINIB
     Indication: Diffuse large B-cell lymphoma
     Route: 048
     Dates: start: 20240523, end: 20240611
  6. ZANUBRUTINIB [Suspect]
     Active Substance: ZANUBRUTINIB
     Route: 048
     Dates: start: 20240612, end: 20240703
  7. LENALIDOMIDE [Suspect]
     Active Substance: LENALIDOMIDE
     Indication: Diffuse large B-cell lymphoma
     Route: 048
     Dates: start: 20240524, end: 20240602
  8. LENALIDOMIDE [Suspect]
     Active Substance: LENALIDOMIDE
     Route: 048
     Dates: start: 20240613, end: 20240622
  9. CLOPIDOGREL [Concomitant]
     Active Substance: CLOPIDOGREL BISULFATE
     Route: 048
  10. AMBROXOL HYDROCHLORIDE [Concomitant]
     Active Substance: AMBROXOL HYDROCHLORIDE
     Route: 042
     Dates: start: 20240520
  11. TORSEMIDE [Concomitant]
     Active Substance: TORSEMIDE
     Indication: Prophylaxis
     Route: 042
     Dates: start: 20240520
  12. Recombinant human thrombopoietin injection [Concomitant]
     Dosage: DOSE 15000 U ROUTE OTHERS IH
     Route: 050
     Dates: start: 20240521, end: 20240605
  13. Omeprazole Enteric-coated Capsules [Concomitant]
     Indication: Prophylaxis
     Route: 048
     Dates: start: 20240621, end: 20240622
  14. Omeprazole Enteric-coated Capsules [Concomitant]
     Route: 048
     Dates: start: 20240612, end: 20240612
  15. Isosorbide Dinitrate Injection [Concomitant]
     Dosage: ROUTE MPP
     Route: 050
     Dates: start: 20240522, end: 20240606
  16. SPIRONOLACTONE [Concomitant]
     Active Substance: SPIRONOLACTONE
     Indication: Prophylaxis
     Route: 048
     Dates: start: 20240522
  17. Potassium Chloride Sustained-release Tablets [Concomitant]
     Indication: Prophylaxis
     Dosage: 2 TABLETS
     Route: 048
     Dates: start: 20240522
  18. FLUCONAZOLE [Concomitant]
     Active Substance: FLUCONAZOLE
     Indication: Prophylaxis
     Route: 042
     Dates: start: 20240523
  19. MEROPENEM [Concomitant]
     Active Substance: MEROPENEM
     Route: 042
     Dates: start: 20240525
  20. FEBUXOSTAT [Concomitant]
     Active Substance: FEBUXOSTAT
     Indication: Blood uric acid decreased
     Route: 048
     Dates: start: 20240525, end: 20240605
  21. ATORVASTATIN CALCIUM [Concomitant]
     Active Substance: ATORVASTATIN CALCIUM
     Route: 048
     Dates: start: 20240526
  22. Carpofungin acetate for injection [Concomitant]
     Route: 042
     Dates: start: 20240527
  23. FONDAPARINUX SODIUM [Concomitant]
     Active Substance: FONDAPARINUX SODIUM
     Indication: Prophylaxis
     Dosage: ROUTE IH
     Route: 050
     Dates: start: 20240529
  24. Vancomycin for injection [Concomitant]
     Route: 042
     Dates: start: 20240531
  25. Ursodeoxycholic acid capsules [Concomitant]
     Indication: Prophylaxis
     Route: 048
     Dates: start: 20240603
  26. Recombinant human brain natriuretic peptide for injection [Concomitant]
     Route: 050
     Dates: start: 20240606, end: 20240606
  27. METHYLPREDNISOLONE SODIUM SUCCINATE [Concomitant]
     Active Substance: METHYLPREDNISOLONE SODIUM SUCCINATE
     Route: 042
     Dates: start: 20240612, end: 20240612
  28. Compound acetaminophen tablets [Concomitant]
     Indication: Prophylaxis
     Route: 048
     Dates: start: 20240612, end: 20240613
  29. PROMETHAZINE [Concomitant]
     Active Substance: PROMETHAZINE HYDROCHLORIDE
     Route: 030
     Dates: start: 20240612, end: 20240613
  30. LEUCOGEN [Concomitant]
     Active Substance: LEUCOGEN
     Route: 048
     Dates: start: 20240614
  31. Cefaclor sustained release capsules [Concomitant]
     Route: 048
     Dates: start: 20240614
  32. SULFAMETHOXAZOLE [Concomitant]
     Active Substance: SULFAMETHOXAZOLE
     Dosage: 1 TABLET
     Route: 048
     Dates: start: 20240614

REACTIONS (1)
  - Death [Fatal]

NARRATIVE: CASE EVENT DATE: 20240701
